FAERS Safety Report 20011396 (Version 1)
Quarter: 2021Q4

REPORT INFORMATION
  Report Type: Spontaneous
  Country: BG (occurrence: BG)
  Receive Date: 20211029
  Receipt Date: 20211029
  Transmission Date: 20220303
  Serious: Yes (Hospitalization)
  Sender: FDA-Public Use
  Company Number: BG-ABBVIE-21K-022-4134025-00

PATIENT
  Age: 52 Year
  Sex: Male

DRUGS (1)
  1. HUMIRA [Suspect]
     Active Substance: ADALIMUMAB
     Indication: Prostatic specific antigen
     Route: 058
     Dates: start: 202105

REACTIONS (16)
  - COVID-19 [Recovered/Resolved with Sequelae]
  - Mobility decreased [Unknown]
  - Loss of personal independence in daily activities [Unknown]
  - Joint swelling [Unknown]
  - Joint range of motion decreased [Unknown]
  - Sacroiliitis [Unknown]
  - Joint warmth [Unknown]
  - General physical health deterioration [Unknown]
  - Musculoskeletal stiffness [Unknown]
  - Arthralgia [Unknown]
  - Rash papulosquamous [Unknown]
  - Myalgia [Unknown]
  - Rash papulosquamous [Unknown]
  - Psoriasis [Unknown]
  - Spondylitis [Unknown]
  - Ankylosing spondylitis [Unknown]

NARRATIVE: CASE EVENT DATE: 20210901
